FAERS Safety Report 5091499-9 (Version None)
Quarter: 2006Q3

REPORT INFORMATION
  Report Type: 
  Country: None (occurrence: None)
  Receive Date: 20060829
  Receipt Date: 20060821
  Transmission Date: 20061208
  Serious: Yes (Hospitalization)
  Sender: FDA-Public Use
  Company Number: 2006UW16713

PATIENT

DRUGS (3)
  1. PULMICORT RESPULES [Suspect]
     Route: 055
  2. CROMLOYN [Concomitant]
  3. DUONEB [Concomitant]

REACTIONS (1)
  - HOSPITALISATION [None]
